FAERS Safety Report 4445396-X (Version None)
Quarter: 2004Q3

REPORT INFORMATION
  Report Type: 
  Country: None (occurrence: None)
  Receive Date: 20040729
  Receipt Date: 20040409
  Transmission Date: 20050211
  Serious: Yes (Hospitalization)
  Sender: FDA-Public Use
  Company Number: 2004UW07256

PATIENT
  Age: 81 Year
  Sex: Female

DRUGS (11)
  1. ELAVIL [Suspect]
     Indication: NEURALGIA
     Dosage: 10 MG QD PO
     Route: 048
     Dates: start: 20031009, end: 20031012
  2. ELAVIL [Suspect]
     Indication: NEURALGIA
     Dosage: 10 MG QD PO
     Route: 048
     Dates: start: 20031201
  3. ELAVIL [Suspect]
     Indication: NEURALGIA
     Dosage: 20 MG QD PO
     Route: 048
     Dates: start: 20040308, end: 20040311
  4. ELAVIL [Suspect]
     Indication: NEURALGIA
     Dosage: 10 MG QD PO
     Route: 048
     Dates: start: 20040312, end: 20040315
  5. ALBUTEROL [Concomitant]
  6. ACETAMINOPHEN W/ CODEINE [Concomitant]
  7. AMIODARONE [Concomitant]
  8. BENDROFLUMETHIAZIDE [Concomitant]
  9. CARBIMAZOLE [Concomitant]
  10. HYDROCORTISONE [Concomitant]
  11. TRIMETHOPRIM [Concomitant]

REACTIONS (4)
  - DIFFICULTY IN WALKING [None]
  - HYPERTONIA [None]
  - MYOCLONUS [None]
  - TREMOR [None]
